FAERS Safety Report 10175213 (Version 1)
Quarter: 2014Q2

REPORT INFORMATION
  Report Type: Spontaneous
  Country: US (occurrence: US)
  Receive Date: 20140515
  Receipt Date: 20140515
  Transmission Date: 20141212
  Serious: No
  Sender: FDA-Public Use
  Company Number: US-VIVUS-2014V1000098

PATIENT
  Sex: Female
  Weight: 130.3 kg

DRUGS (2)
  1. QSYMIA 11.25MG/69MG [Suspect]
     Indication: WEIGHT DECREASED
     Route: 048
     Dates: start: 2013
  2. QSYMIA 7.5MG/46MG [Suspect]
     Indication: WEIGHT DECREASED
     Route: 048
     Dates: start: 2013, end: 2013

REACTIONS (3)
  - Rash erythematous [Recovered/Resolved]
  - Rash pruritic [Recovered/Resolved]
  - Dysgeusia [Recovered/Resolved]
